FAERS Safety Report 24629303 (Version 1)
Quarter: 2024Q4

REPORT INFORMATION
  Report Type: Spontaneous
  Country: IT (occurrence: IT)
  Receive Date: 20241118
  Receipt Date: 20241118
  Transmission Date: 20250114
  Serious: Yes (Hospitalization)
  Sender: AUROBINDO
  Company Number: IT-TILLOMEDPR-2024-EPL-005840

PATIENT
  Age: 71 Year
  Sex: Male

DRUGS (2)
  1. PIPERACILLIN SODIUM\TAZOBACTAM SODIUM [Suspect]
     Active Substance: PIPERACILLIN SODIUM\TAZOBACTAM SODIUM
     Indication: Pyelonephritis
     Dosage: 4.5 MILLIGRAM, FOUR TIMES/DAY (4.5 MILLIGRAM, 1 DOSE PER 6HRS)
     Route: 042
  2. FLUCONAZOLE [Concomitant]
     Active Substance: FLUCONAZOLE
     Indication: Product used for unknown indication
     Dosage: 400 MILLIGRAM, ONCE A DAY (400 MILLIGRAM, 1 DOSE PER 1D)
     Route: 042

REACTIONS (1)
  - Drug resistance [Unknown]
